FAERS Safety Report 6162402-5 (Version None)
Quarter: 2009Q2

REPORT INFORMATION
  Report Type: 
  Country: None (occurrence: None)
  Receive Date: 20090421
  Receipt Date: 20090409
  Transmission Date: 20091009
  Serious: Yes (Death)
  Sender: FDA-Public Use
  Company Number: CA-PFIZER INC-2009193261

PATIENT

DRUGS (10)
  1. VFEND [Suspect]
     Indication: ASPERGILLOSIS
     Dosage: UNK
     Route: 048
     Dates: start: 20090314, end: 20090323
  2. VFEND [Suspect]
     Dosage: UNK
     Route: 048
     Dates: start: 20090327
  3. VFEND [Suspect]
     Dosage: UNK
     Route: 042
     Dates: start: 20090324, end: 20090326
  4. CASPOFUNGIN [Concomitant]
     Dosage: UNK
     Dates: start: 20090314, end: 20090324
  5. CASPOFUNGIN [Concomitant]
     Dosage: UNK
     Dates: start: 20090401
  6. BUDESONIDE [Concomitant]
  7. CYCLOSPORINE [Concomitant]
  8. HEPARIN [Concomitant]
  9. TAZOCIN [Concomitant]
  10. INSULIN [Concomitant]

REACTIONS (2)
  - ASPERGILLOSIS [None]
  - MALABSORPTION [None]
